FAERS Safety Report 18013887 (Version 2)
Quarter: 2021Q2

REPORT INFORMATION
  Report Type: Spontaneous
  Country: DE (occurrence: DE)
  Receive Date: 20200713
  Receipt Date: 20210628
  Transmission Date: 20210717
  Serious: Yes (Other)
  Sender: FDA-Public Use
  Company Number: DE-TEVA-2020-DE-1801112

PATIENT
  Sex: Female

DRUGS (6)
  1. ATORVASTATIN?RATIOPHARM 80 MG FILMTABLETTEN [Suspect]
     Active Substance: ATORVASTATIN CALCIUM
     Dosage: 80 MILLIGRAM DAILY; 1 TABLET IN THE EVENING
     Route: 048
  2. ELIQUIS [Suspect]
     Active Substance: APIXABAN
     Dosage: 10 MILLIGRAM DAILY; IN THE MORNING AND EVENING 1 TABLET
     Route: 048
  3. TELMISARTAN GLENMARK 40 MG FILMTABLETTEN [Suspect]
     Active Substance: TELMISARTAN
     Dosage: 40 MILLIGRAM DAILY; 1 TABLET IN THE MORNING
     Route: 048
  4. METOPROLOL?RATIOPHARM SUCCINAT 23,75 MG RETARDTABLETTEN [Suspect]
     Active Substance: METOPROLOL SUCCINATE
     Dosage: 47.5 MILLIGRAM DAILY; IN THE MORNING AND EVENING 1 TABLET
     Route: 048
  5. LAMOTRIGIN ARISTO TABLETTEN [Suspect]
     Active Substance: LAMOTRIGINE
     Dosage: 50 MILLIGRAM DAILY; 1 TABLET 25MG IN THE MORNING AND IN THE EVENING
     Route: 048
  6. LAMOTRIGIN ARISTO TABLETTEN [Suspect]
     Active Substance: LAMOTRIGINE
     Dosage: 100 MILLIGRAM DAILY; 1 TABLET 50MG IN THE MORNING AND IN THE EVENING
     Route: 048

REACTIONS (1)
  - Chloropsia [Not Recovered/Not Resolved]
